FAERS Safety Report 10420438 (Version 1)
Quarter: 2014Q3

REPORT INFORMATION
  Report Type: Spontaneous
  Country: US (occurrence: None)
  Receive Date: 20140701
  Receipt Date: 20140701
  Transmission Date: 20150326
  Serious: No
  Sender: FDA-Public Use
  Company Number: 1000067466

PATIENT
  Age: 61 Year
  Sex: Female

DRUGS (7)
  1. POTASSIUM [Concomitant]
     Active Substance: POTASSIUM
  2. LINZESS [Suspect]
     Active Substance: LINACLOTIDE
     Indication: CONSTIPATION
     Route: 048
     Dates: start: 201403, end: 201404
  3. METHOTREXATE [Concomitant]
     Active Substance: METHOTREXATE
  4. THYROID MEDICATION NOS [Concomitant]
  5. DIABETES MEDICATION NOS [Concomitant]
  6. LINZESS [Suspect]
     Active Substance: LINACLOTIDE
     Indication: IRRITABLE BOWEL SYNDROME
     Route: 048
     Dates: start: 201403, end: 201404
  7. LORTAB (HYDROCODONE, ACETAMINOPHEN) [Concomitant]

REACTIONS (4)
  - Intentional product misuse [None]
  - Abdominal distension [None]
  - Constipation [None]
  - Fluid retention [None]

NARRATIVE: CASE EVENT DATE: 2014
